FAERS Safety Report 8176589-6 (Version None)
Quarter: 2012Q1

REPORT INFORMATION
  Report Type: 
  Country: None (occurrence: None)
  Receive Date: 20120301
  Receipt Date: 20120222
  Transmission Date: 20120608
  Serious: Yes (Other)
  Sender: FDA-Public Use
  Company Number: GR-JNJFOC-20120212151

PATIENT
  Age: 68 Year
  Sex: Male

DRUGS (15)
  1. VINCRISTINE [Suspect]
     Indication: CHEMOTHERAPY
     Route: 065
  2. RITUXIMAB [Suspect]
     Indication: CHEMOTHERAPY
     Route: 065
  3. PREDNISONE TAB [Suspect]
     Indication: CHEMOTHERAPY
     Route: 065
  4. VINBLASTINE SULFATE [Suspect]
     Indication: CHEMOTHERAPY
     Route: 065
  5. DACARBAZINE [Suspect]
     Indication: CHEMOTHERAPY
     Route: 065
  6. CISPLATIN [Suspect]
     Indication: CHEMOTHERAPY
     Route: 065
  7. MELPHALAN HYDROCHLORIDE [Suspect]
     Indication: CHEMOTHERAPY
     Route: 065
  8. BLEOMYCIN SULFATE [Suspect]
     Indication: CHEMOTHERAPY
     Route: 065
  9. CYCLOPHOSPHAMIDE [Suspect]
     Indication: CHEMOTHERAPY
     Route: 065
  10. DEXAMETHASONE [Suspect]
     Indication: CHEMOTHERAPY
     Route: 065
  11. ETOPOSIDE [Suspect]
     Indication: CHEMOTHERAPY
     Route: 065
  12. DOXORUBICIN HCL [Suspect]
     Indication: CHEMOTHERAPY
     Route: 042
  13. ADRIAMYCIN PFS [Suspect]
     Indication: CHEMOTHERAPY
     Route: 065
  14. CYTARABINE [Suspect]
     Indication: CHEMOTHERAPY
     Route: 065
  15. CARMUSTINE [Suspect]
     Indication: CHEMOTHERAPY
     Route: 065

REACTIONS (2)
  - HEPATITIS B [None]
  - HODGKIN'S DISEASE RECURRENT [None]
